FAERS Safety Report 8940907 (Version 1)
Quarter: 2012Q4

REPORT INFORMATION
  Report Type: 
  Country: US (occurrence: US)
  Receive Date: 20121203
  Receipt Date: 20121203
  Transmission Date: 20130627
  Serious: No
  Sender: FDA-Public Use
  Company Number: US-ASTRAZENECA-2012SE87216

PATIENT
  Age: 62 Year
  Sex: Male

DRUGS (2)
  1. BRILINTA [Suspect]
     Indication: MYOCARDIAL INFARCTION
     Route: 048
     Dates: start: 2012, end: 2012
  2. PLAVIX [Suspect]
     Route: 048

REACTIONS (3)
  - Coronary artery disease [Unknown]
  - Dyspnoea [Unknown]
  - Drug ineffective [Unknown]
